FAERS Safety Report 9503826 (Version 1)
Quarter: 2013Q3

REPORT INFORMATION
  Report Type: Spontaneous
  Country: CO (occurrence: CO)
  Receive Date: 20130906
  Receipt Date: 20130906
  Transmission Date: 20140515
  Serious: Yes (Death, Other)
  Sender: FDA-Public Use
  Company Number: CO-UCBSA-097389

PATIENT
  Age: 85 Year
  Sex: Male

DRUGS (2)
  1. NEUPRO [Suspect]
     Indication: PARKINSON^S DISEASE
     Dosage: DAILY DOSE: 4 MG
     Route: 062
     Dates: start: 20130218, end: 20130721
  2. LEVODOPA /CARBIDOPA [Concomitant]
     Dosage: UNKNOWN DOSE

REACTIONS (5)
  - Cardiopulmonary failure [Fatal]
  - Fall [Unknown]
  - Head injury [Unknown]
  - Joint dislocation [Unknown]
  - Constipation [Recovered/Resolved]
